FAERS Safety Report 5441883-6 (Version None)
Quarter: 2007Q3

REPORT INFORMATION
  Report Type: 
  Country: None (occurrence: None)
  Receive Date: 20070904
  Receipt Date: 20070824
  Transmission Date: 20080115
  Serious: Yes (Life-Threatening, Hospitalization)
  Sender: FDA-Public Use
  Company Number: JP-JNJFOC-20061102270

PATIENT

DRUGS (9)
  1. MICONAZOLE [Suspect]
     Route: 048
  2. MICONAZOLE [Suspect]
     Indication: ORAL INFECTION
     Route: 048
  3. WARFARIN POTASSIUM [Interacting]
     Indication: CEREBRAL INFARCTION
     Route: 048
     Dates: start: 20050323, end: 20061021
  4. PRAVASTATIN SODIUM [Concomitant]
     Indication: HYPERLIPIDAEMIA
     Route: 048
  5. CILOSTAZOL [Concomitant]
     Indication: MYOCARDIAL INFARCTION
     Route: 048
  6. CARVEDILOL [Concomitant]
     Indication: MYOCARDIAL INFARCTION
     Route: 048
  7. APRINDINE HYDROCHLORIDE [Concomitant]
     Indication: ATRIAL FIBRILLATION
     Route: 048
  8. ETIZOLAM [Concomitant]
     Indication: INSOMNIA
     Route: 048
  9. SENNOSIDE [Concomitant]
     Route: 048

REACTIONS (4)
  - ANAEMIA [None]
  - DRUG INTERACTION [None]
  - HAEMATOMA [None]
  - HAEMORRHAGE [None]
